FAERS Safety Report 19479040 (Version 2)
Quarter: 2021Q3

REPORT INFORMATION
  Report Type: Spontaneous
  Country: DE (occurrence: DE)
  Receive Date: 20210630
  Receipt Date: 20210701
  Transmission Date: 20211014
  Serious: Yes (Other)
  Sender: FDA-Public Use
  Company Number: NVSC2021DE144027

PATIENT
  Sex: Female

DRUGS (1)
  1. CEFPODOXIME SANDOZ 200 [Suspect]
     Active Substance: CEFPODOXIME PROXETIL
     Indication: PNEUMONIA
     Dosage: UNK
     Route: 065
     Dates: start: 20210615

REACTIONS (3)
  - Pruritus [Not Recovered/Not Resolved]
  - Rash [Not Recovered/Not Resolved]
  - Skin reaction [Not Recovered/Not Resolved]

NARRATIVE: CASE EVENT DATE: 20210617
